FAERS Safety Report 4955271-X (Version None)
Quarter: 2006Q1

REPORT INFORMATION
  Report Type: 
  Country: None (occurrence: None)
  Receive Date: 20060322
  Receipt Date: 20060316
  Transmission Date: 20060701
  Serious: Yes (Death)
  Sender: FDA-Public Use
  Company Number: 163-21880-06030072

PATIENT
  Age: 71 Year
  Sex: Female

DRUGS (1)
  1. REVLIMID [Suspect]
     Indication: MYELODYSPLASTIC SYNDROME
     Dosage: 5 MG, QD, ORAL
     Route: 048
     Dates: start: 20060118, end: 20060122

REACTIONS (1)
  - DISEASE PROGRESSION [None]
